FAERS Safety Report 19613123 (Version 1)
Quarter: 2021Q3

REPORT INFORMATION
  Report Type: Spontaneous
  Country: US (occurrence: US)
  Receive Date: 20210724
  Receipt Date: 20210724
  Transmission Date: 20211014
  Serious: Yes (Hospitalization)
  Sender: FDA-Public Use
  Company Number: None

PATIENT
  Age: 68 Year
  Sex: Male
  Weight: 90.7 kg

DRUGS (2)
  1. CARBOPLATIN. [Suspect]
     Active Substance: CARBOPLATIN
     Dates: end: 20210415
  2. TAXOL [Suspect]
     Active Substance: PACLITAXEL
     Dates: end: 20210415

REACTIONS (2)
  - Staphylococcal bacteraemia [None]
  - Post procedural infection [None]

NARRATIVE: CASE EVENT DATE: 20210703
